FAERS Safety Report 11329484 (Version 1)
Quarter: 2015Q3

REPORT INFORMATION
  Report Type: Spontaneous
  Country: JP (occurrence: JP)
  Receive Date: 20150803
  Receipt Date: 20150803
  Transmission Date: 20151125
  Serious: Yes (Other)
  Sender: FDA-Public Use
  Company Number: JP-CIPLA LTD.-2015JP06162

PATIENT

DRUGS (10)
  1. QUETIAPINE [Suspect]
     Active Substance: QUETIAPINE
     Indication: BEHAVIOURAL AND PSYCHIATRIC SYMPTOMS OF DEMENTIA
  2. LEVODOPA/DOPA-DECARBOXLASE INHIBITOR [Suspect]
     Active Substance: LEVODOPA\UNSPECIFIED INGREDIENT
     Indication: PARKINSON^S DISEASE
     Route: 065
  3. ENTACAPONE. [Suspect]
     Active Substance: ENTACAPONE
     Indication: PARKINSON^S DISEASE
     Route: 065
  4. TRAZODONE [Suspect]
     Active Substance: TRAZODONE HYDROCHLORIDE
     Indication: COGNITIVE DISORDER
     Route: 065
  5. TRAZODONE [Suspect]
     Active Substance: TRAZODONE HYDROCHLORIDE
     Indication: BEHAVIOURAL AND PSYCHIATRIC SYMPTOMS OF DEMENTIA
  6. DONEPEZIL. [Suspect]
     Active Substance: DONEPEZIL
     Indication: DEMENTIA WITH LEWY BODIES
  7. DONEPEZIL. [Suspect]
     Active Substance: DONEPEZIL
     Indication: COGNITIVE DISORDER
     Dosage: 5 MG, QD
     Route: 048
  8. DONEPEZIL. [Suspect]
     Active Substance: DONEPEZIL
     Indication: BEHAVIOURAL AND PSYCHIATRIC SYMPTOMS OF DEMENTIA
     Dosage: 10 MG, QD
     Route: 048
  9. QUETIAPINE [Suspect]
     Active Substance: QUETIAPINE
     Indication: COGNITIVE DISORDER
     Route: 065
  10. SELEGILINE [Suspect]
     Active Substance: SELEGILINE
     Indication: PARKINSON^S DISEASE
     Route: 065

REACTIONS (1)
  - Disease recurrence [Unknown]
